FAERS Safety Report 8606176 (Version 6)
Quarter: 2014Q3

REPORT INFORMATION
  Report Type: Spontaneous
  Country: US (occurrence: US)
  Receive Date: 20120608
  Receipt Date: 20140711
  Transmission Date: 20150326
  Serious: No
  Sender: FDA-Public Use
  Company Number: US-ASTRAZENECA-2011SE48128

PATIENT
  Age: 75 Year
  Sex: Female

DRUGS (10)
  1. ATACAND [Suspect]
     Active Substance: CANDESARTAN CILEXETIL
     Route: 048
  2. NEXIUM [Suspect]
     Active Substance: ESOMEPRAZOLE MAGNESIUM
     Indication: CROHN^S DISEASE
     Route: 048
  3. ASPIRINE [Concomitant]
     Active Substance: ASPIRIN
  4. METOPROLOL [Concomitant]
     Active Substance: METOPROLOL
  5. ALLOPURINOL. [Concomitant]
     Active Substance: ALLOPURINOL
  6. FOLIC ACID. [Concomitant]
     Active Substance: FOLIC ACID
  7. LOSARTIN [Concomitant]
     Active Substance: LOSARTAN
  8. CLONIDINE. [Concomitant]
     Active Substance: CLONIDINE
  9. LASIX [Concomitant]
     Active Substance: FUROSEMIDE
  10. VITAMIN B12 [Concomitant]
     Active Substance: CYANOCOBALAMIN

REACTIONS (10)
  - Malaise [Unknown]
  - Heart rate increased [Unknown]
  - Sinusitis [Unknown]
  - Gastric disorder [Unknown]
  - Crohn^s disease [Unknown]
  - Diabetes mellitus [Unknown]
  - Hypertension [Unknown]
  - Vitamin B12 deficiency [Unknown]
  - Drug dose omission [Unknown]
  - Neuropathy peripheral [Unknown]
